FAERS Safety Report 5990342-0 (Version None)
Quarter: 2008Q4

REPORT INFORMATION
  Report Type: 
  Country: None (occurrence: None)
  Receive Date: 20081211
  Receipt Date: 20081110
  Transmission Date: 20090506
  Serious: No
  Sender: FDA-Public Use
  Company Number: US-BAYER-200830948NA

PATIENT
  Age: 34 Year
  Sex: Female

DRUGS (1)
  1. MIRENA [Suspect]
     Indication: CONTRACEPTION
     Route: 015
     Dates: start: 20080723

REACTIONS (5)
  - ABDOMINAL PAIN [None]
  - IUCD COMPLICATION [None]
  - MENORRHAGIA [None]
  - METRORRHAGIA [None]
  - PROCEDURAL PAIN [None]
